FAERS Safety Report 18670111 (Version 2)
Quarter: 2021Q1

REPORT INFORMATION
  Report Type: Spontaneous
  Country: US (occurrence: US)
  Receive Date: 20201228
  Receipt Date: 20210106
  Transmission Date: 20210419
  Serious: Yes (Other)
  Sender: FDA-Public Use
  Company Number: US-GLAXOSMITHKLINE-US2020AMR252248

PATIENT
  Age: 68 Year
  Sex: Female

DRUGS (5)
  1. ZEJULA [Suspect]
     Active Substance: NIRAPARIB
     Indication: OVARIAN CANCER RECURRENT
     Dosage: UNK
  2. LYNPARZA [Suspect]
     Active Substance: OLAPARIB
     Indication: OVARIAN CANCER RECURRENT
     Dosage: UNK
  3. CARBOPLATIN. [Suspect]
     Active Substance: CARBOPLATIN
     Indication: OVARIAN CANCER RECURRENT
     Dosage: UNK
     Dates: start: 2015
  4. DOXIL [Suspect]
     Active Substance: DOXORUBICIN HYDROCHLORIDE
     Indication: OVARIAN CANCER RECURRENT
     Dosage: UNK
  5. TAXOL [Suspect]
     Active Substance: PACLITAXEL
     Indication: OVARIAN CANCER RECURRENT
     Dosage: UNK
     Dates: start: 2015

REACTIONS (12)
  - Pneumonia [Unknown]
  - Skin disorder [Unknown]
  - Drug hypersensitivity [Not Recovered/Not Resolved]
  - Alopecia [Unknown]
  - Pruritus [Unknown]
  - Pallor [Unknown]
  - Ill-defined disorder [Unknown]
  - Product complaint [Unknown]
  - Heavy exposure to ultraviolet light [Unknown]
  - Platelet count abnormal [Unknown]
  - Rash [Unknown]
  - White blood cell count decreased [Unknown]
